FAERS Safety Report 10520070 (Version 3)
Quarter: 2015Q1

REPORT INFORMATION
  Report Type: Spontaneous
  Country: US (occurrence: US)
  Receive Date: 20141015
  Receipt Date: 20150210
  Transmission Date: 20150720
  Serious: Yes (Other)
  Sender: FDA-Public Use
  Company Number: US-PFIZER INC-2014282718

PATIENT
  Age: 83 Year
  Sex: Female
  Weight: 72.56 kg

DRUGS (11)
  1. ELIQUIS [Suspect]
     Active Substance: APIXABAN
     Dosage: 5 MG, 2X/DAY
  2. HEPARIN SODIUM. [Interacting]
     Active Substance: HEPARIN SODIUM
     Dosage: UNK
  3. METOPROLOL [Concomitant]
     Active Substance: METOPROLOL
  4. VITAMIN D [Concomitant]
     Active Substance: CHOLECALCIFEROL
  5. DOXYCYCLINE. [Concomitant]
     Active Substance: DOXYCYCLINE
  6. MULTIVITAMINS [Concomitant]
     Active Substance: VITAMINS
  7. TIKOSYN [Concomitant]
     Active Substance: DOFETILIDE
     Dosage: 250 MG, 2X/DAY
  8. ALEVE [Interacting]
     Active Substance: NAPROXEN SODIUM
  9. SIMVASTATIN. [Concomitant]
     Active Substance: SIMVASTATIN
  10. CHONDROITIN [Concomitant]
     Active Substance: CHONDROITIN
  11. COQ10 [Concomitant]
     Active Substance: UBIDECARENONE

REACTIONS (4)
  - Rash [Recovering/Resolving]
  - Drug interaction [Unknown]
  - Lyme disease [Unknown]
  - Haemorrhage [Unknown]
